FAERS Safety Report 5152006-5 (Version None)
Quarter: 2006Q4

REPORT INFORMATION
  Report Type: 
  Country: None (occurrence: None)
  Receive Date: 20061116
  Receipt Date: 20061105
  Transmission Date: 20070319
  Serious: Yes (Hospitalization, Disabling)
  Sender: FDA-Public Use
  Company Number: PHEH2006US13729

PATIENT

DRUGS (2)
  1. EXJADE [Suspect]
     Dosage: 20 MG/KG, QD
  2. EXJADE [Suspect]
     Dosage: 10 MG/KG, UNK

REACTIONS (2)
  - ERYTHEMA MULTIFORME [None]
  - TACHYPHYLAXIS [None]
